FAERS Safety Report 6425246-2 (Version None)
Quarter: 2009Q4

REPORT INFORMATION
  Report Type: 
  Country: None (occurrence: None)
  Receive Date: 20091029
  Receipt Date: 20090604
  Transmission Date: 20100525
  Serious: Yes (Other)
  Sender: FDA-Public Use
  Company Number: 197312USA

PATIENT
  Sex: Female

DRUGS (2)
  1. PERGOLIDE MESYLATE [Suspect]
     Indication: RESTLESS LEGS SYNDROME
     Dosage: ORAL
     Route: 048
  2. PERGOLIDE MESYLATE [Suspect]
     Indication: RESTLESS LEGS SYNDROME

REACTIONS (3)
  - CARDIAC VALVE DISEASE [None]
  - HEART VALVE INCOMPETENCE [None]
  - PULMONARY HYPERTENSION [None]
